FAERS Safety Report 5987261-2 (Version None)
Quarter: 2008Q4

REPORT INFORMATION
  Report Type: 
  Country: None (occurrence: None)
  Receive Date: 20081126
  Receipt Date: 20071105
  Transmission Date: 20090506
  Serious: Yes (Hospitalization)
  Sender: FDA-Public Use
  Company Number: 2007BH008726

PATIENT
  Age: 71 Year
  Sex: Male

DRUGS (14)
  1. DIANEAL [Suspect]
     Indication: PERITONEAL DIALYSIS
     Dosage: IP
     Route: 033
  2. DIANEAL [Suspect]
     Indication: PERITONEAL DIALYSIS
     Dosage: IP
     Route: 033
  3. POTASSIUM CHLORIDE [Concomitant]
  4. GLIMEPIRIDE [Concomitant]
  5. COLCHICINE [Concomitant]
  6. COLACE [Concomitant]
  7. PROTONIX [Concomitant]
  8. LOVENOX [Concomitant]
  9. NORVASC [Concomitant]
  10. NEPHROCAPS [Concomitant]
  11. HUMALOG [Concomitant]
  12. CALCITRIOL [Concomitant]
  13. ASPIRIN [Concomitant]
  14. RENAGEL [Concomitant]

REACTIONS (1)
  - PERITONITIS [None]
